FAERS Safety Report 14141746 (Version 1)
Quarter: 2017Q4

REPORT INFORMATION
  Report Type: Spontaneous
  Country: US (occurrence: US)
  Receive Date: 20171030
  Receipt Date: 20171030
  Transmission Date: 20180321
  Serious: Yes (Other)
  Sender: FDA-Public Use
  Company Number: US-NOVOPROD-569354

PATIENT
  Age: 50 Year
  Sex: Female

DRUGS (2)
  1. TRESIBA [Suspect]
     Active Substance: INSULIN DEGLUDEC
     Dosage: UNK UNK, QD BEFORE BREAKFAST
     Route: 058
     Dates: start: 201704
  2. TRESIBA [Suspect]
     Active Substance: INSULIN DEGLUDEC
     Indication: TYPE 1 DIABETES MELLITUS
     Dosage: UNK UNK, QD BEFORE BREAKFAST
     Route: 058
     Dates: start: 201704

REACTIONS (12)
  - Sleep disorder [Unknown]
  - Abnormal sensation in eye [Not Recovered/Not Resolved]
  - Tremor [Unknown]
  - Blood glucose increased [Not Recovered/Not Resolved]
  - Feeling abnormal [Unknown]
  - Disturbance in attention [Unknown]
  - Enuresis [Unknown]
  - Neck surgery [Unknown]
  - Palpitations [Unknown]
  - Screaming [Unknown]
  - Drug ineffective [Unknown]
  - Restless legs syndrome [Unknown]

NARRATIVE: CASE EVENT DATE: 2017
